FAERS Safety Report 13409903 (Version 1)
Quarter: 2017Q2

REPORT INFORMATION
  Report Type: Spontaneous
  Country: US (occurrence: US)
  Receive Date: 20170406
  Receipt Date: 20170406
  Transmission Date: 20170830
  Serious: No
  Sender: FDA-Public Use
  Company Number: US-PFIZER INC-2017148977

PATIENT
  Age: 56 Year
  Sex: Female

DRUGS (1)
  1. METHOTREXATE SODIUM. [Suspect]
     Active Substance: METHOTREXATE SODIUM
     Dosage: 7.5 MG, WEEKLY (3 TABLETS ORALLY ONCE A WEEK)
     Route: 048

REACTIONS (4)
  - Pain [Unknown]
  - Fatigue [Unknown]
  - Neuropathy peripheral [Unknown]
  - Drug hypersensitivity [Unknown]
